FAERS Safety Report 7961144-0 (Version None)
Quarter: 2011Q4

REPORT INFORMATION
  Report Type: 
  Country: None (occurrence: None)
  Receive Date: 20111207
  Receipt Date: 20111205
  Transmission Date: 20120403
  Serious: Yes (Hospitalization, Other)
  Sender: FDA-Public Use
  Company Number: JP-PFIZER INC-2011291585

PATIENT
  Sex: Male

DRUGS (6)
  1. ACICLOVIR [Concomitant]
     Indication: HERPES ZOSTER
     Dosage: UNK
     Route: 041
     Dates: start: 20111101, end: 20111107
  2. ASPIRIN [Concomitant]
     Indication: PROPHYLAXIS
     Dosage: 100 MG, DAILY
     Route: 048
  3. LYRICA [Suspect]
     Dosage: 300 MG, PER DAY
     Route: 048
     Dates: start: 20111118, end: 20111127
  4. COCARL [Concomitant]
     Dosage: 1200 MG, DAILY
     Dates: start: 20111101, end: 20111117
  5. LYRICA [Suspect]
     Indication: POST HERPETIC NEURALGIA
     Dosage: 150 MG, PER DAY
     Route: 048
     Dates: start: 20111101, end: 20111117
  6. COCARL [Concomitant]
     Dosage: 2400 MG, DAILY
     Dates: start: 20111118

REACTIONS (7)
  - DECREASED APPETITE [None]
  - NAUSEA [None]
  - DRUG INEFFECTIVE [None]
  - URINARY RETENTION [None]
  - ALTERED STATE OF CONSCIOUSNESS [None]
  - MEMORY IMPAIRMENT [None]
  - CONSTIPATION [None]
